FAERS Safety Report 7436755-1 (Version None)
Quarter: 2011Q2

REPORT INFORMATION
  Report Type: 
  Country: None (occurrence: None)
  Receive Date: 20110426
  Receipt Date: 20110419
  Transmission Date: 20111010
  Serious: No
  Sender: FDA-Public Use
  Company Number: US-B.I. PHARMACEUTICALS,INC./RIDGEFIELD-2011-BP-11163BP

PATIENT
  Age: 73 Year
  Sex: Female
  Weight: 89.4 kg

DRUGS (9)
  1. POTASSIUM [Concomitant]
  2. COMBIVENT [Suspect]
  3. SPIRONOLACTONE [Concomitant]
  4. COREG [Concomitant]
  5. WARFARIN [Concomitant]
  6. ISOSORBIDE DINITRATE [Concomitant]
  7. FUROSEMIDE [Concomitant]
  8. ALVESCO [Suspect]
     Indication: CHRONIC OBSTRUCTIVE PULMONARY DISEASE
     Route: 055
     Dates: start: 20110101, end: 20110101
  9. PRAVASTATIN [Concomitant]

REACTIONS (1)
  - SINUSITIS [None]
